FAERS Safety Report 8595086-7 (Version None)
Quarter: 2012Q3

REPORT INFORMATION
  Report Type: 
  Country: None (occurrence: None)
  Receive Date: 20120807
  Receipt Date: 20120807
  Transmission Date: 20120928
  Serious: Yes (Other)
  Sender: FDA-Public Use
  Company Number: None

PATIENT
  Age: 72 Year
  Sex: Female
  Weight: 79.8331 kg

DRUGS (1)
  1. NIFEDIPINE [Suspect]
     Indication: BLOOD PRESSURE INCREASED
     Dosage: ONE TAB EVERY DAY BY MOUTH
     Route: 048
     Dates: start: 20120615

REACTIONS (3)
  - CAPSULE PHYSICAL ISSUE [None]
  - HYPERTENSION [None]
  - DRUG INEFFECTIVE [None]
